FAERS Safety Report 5978203-4 (Version None)
Quarter: 2008Q4

REPORT INFORMATION
  Report Type: 
  Country: None (occurrence: None)
  Receive Date: 20081204
  Receipt Date: 20081202
  Transmission Date: 20090506
  Serious: Yes (Death, Hospitalization)
  Sender: FDA-Public Use
  Company Number: US-BIOGENIDEC-2008BI029637

PATIENT
  Sex: Female

DRUGS (2)
  1. AVONEX [Suspect]
     Indication: MULTIPLE SCLEROSIS
     Route: 030
     Dates: start: 20080418, end: 20081031
  2. AVONEX [Suspect]
     Route: 030
     Dates: start: 19970901, end: 20080101

REACTIONS (3)
  - GALLBLADDER CANCER METASTATIC [None]
  - HEPATIC CANCER METASTATIC [None]
  - PNEUMONIA [None]
